FAERS Safety Report 20121405 (Version 3)
Quarter: 2022Q2

REPORT INFORMATION
  Report Type: Report from Study
  Country: NL (occurrence: NL)
  Receive Date: 20211127
  Receipt Date: 20220628
  Transmission Date: 20220720
  Serious: Yes (Hospitalization)
  Sender: FDA-Public Use
  Company Number: NL-ABBVIE-19S-114-2693543-00

PATIENT
  Sex: Male

DRUGS (10)
  1. CARBIDOPA\LEVODOPA [Suspect]
     Active Substance: CARBIDOPA\LEVODOPA
     Indication: Parkinson^s disease
     Dosage: MD:6.6ML; CD:6.3ML/H; ED:2.6ML; CND:4.5ML/H; END:2.6ML, REMAINS AT 24
     Route: 050
     Dates: start: 20180122
  2. CARBIDOPA\LEVODOPA [Suspect]
     Active Substance: CARBIDOPA\LEVODOPA
     Dosage: CD 6.3 EDD 2.6 NIGHT PUMP: MD 6.6 CDN 4.4
     Route: 050
  3. CARBIDOPA\LEVODOPA [Suspect]
     Active Substance: CARBIDOPA\LEVODOPA
     Dosage: CD 6.3 ED 2.6 MD 6.6 CDN 4.5 EDN 2.6  MD:6.6ML;
     Route: 050
  4. CARBIDOPA\LEVODOPA [Suspect]
     Active Substance: CARBIDOPA\LEVODOPA
     Dosage: MD:6.6ML,CD:5.9ML/H; ED:2.6ML; CND:5.1ML/H; END: 2.6ML, REMAINS AT 24
     Route: 050
  5. CARBIDOPA\LEVODOPA [Suspect]
     Active Substance: CARBIDOPA\LEVODOPA
     Dosage: MD 6.6 ML CD 5.9 ML/H ED 2.6 ML CND 5.0ML/ END 2.6ML
     Route: 050
  6. CARBIDOPA\LEVODOPA [Suspect]
     Active Substance: CARBIDOPA\LEVODOPA
     Dosage: MD:6.6ML; CD:5.9ML/H; ED:2.6ML; CND:4.9ML/H; END: 2.6ML?REMAINS AT 24 HOURS
     Route: 050
  7. POLYETHYLENE GLYCOLS [Concomitant]
     Active Substance: POLYETHYLENE GLYCOLS
     Indication: Abnormal faeces
     Dosage: MD: 6.6, CD: 6, ED: 2.5, CND: 4.3, 2 SACHET?24 HOUR ADMINISTRATION
     Route: 050
  8. MOVICOLON [Concomitant]
     Active Substance: POLYETHYLENE GLYCOL 3350\POTASSIUM CHLORIDE\SODIUM BICARBONATE\SODIUM CHLORIDE
     Indication: Abnormal faeces
  9. ENTACAPONE [Concomitant]
     Active Substance: ENTACAPONE
     Indication: Parkinson^s disease
     Dosage: 1 TABLET
  10. REQUIP [Concomitant]
     Active Substance: ROPINIROLE HYDROCHLORIDE
     Indication: Parkinson^s disease
     Route: 048

REACTIONS (50)
  - Hallucination [Not Recovered/Not Resolved]
  - Delusion [Not Recovered/Not Resolved]
  - Mental disorder [Unknown]
  - Emotional distress [Not Recovered/Not Resolved]
  - Hypophagia [Not Recovered/Not Resolved]
  - Obsessive-compulsive disorder [Unknown]
  - Speech disorder [Not Recovered/Not Resolved]
  - Fluid intake reduced [Not Recovered/Not Resolved]
  - Reduced facial expression [Not Recovered/Not Resolved]
  - Discomfort [Unknown]
  - Fibroma [Not Recovered/Not Resolved]
  - Tension [Unknown]
  - Cognitive disorder [Not Recovered/Not Resolved]
  - Device difficult to use [Unknown]
  - Hypoaesthesia [Not Recovered/Not Resolved]
  - Memory impairment [Recovered/Resolved]
  - Muscle rigidity [Not Recovered/Not Resolved]
  - Dyschezia [Recovered/Resolved]
  - Medical device site discomfort [Unknown]
  - Gastrointestinal pain [Not Recovered/Not Resolved]
  - Memory impairment [Not Recovered/Not Resolved]
  - Mobility decreased [Not Recovered/Not Resolved]
  - Muscular weakness [Not Recovered/Not Resolved]
  - Visual impairment [Not Recovered/Not Resolved]
  - Altered visual depth perception [Not Recovered/Not Resolved]
  - Pain in extremity [Not Recovered/Not Resolved]
  - Muscle spasms [Not Recovered/Not Resolved]
  - Tremor [Recovered/Resolved]
  - Abnormal dreams [Not Recovered/Not Resolved]
  - Tremor [Not Recovered/Not Resolved]
  - Device dislocation [Recovered/Resolved]
  - Polyneuropathy [Not Recovered/Not Resolved]
  - Unevaluable event [Not Recovered/Not Resolved]
  - Abdominal distension [Not Recovered/Not Resolved]
  - On and off phenomenon [Not Recovered/Not Resolved]
  - Therapeutic product effect decreased [Recovered/Resolved]
  - Parkinson^s disease [Unknown]
  - Stoma site discharge [Recovered/Resolved]
  - Stoma site pain [Recovered/Resolved]
  - Hallucination [Recovered/Resolved]
  - Depressed mood [Not Recovered/Not Resolved]
  - Initial insomnia [Recovered/Resolved]
  - Dyskinesia [Unknown]
  - Hallucination, visual [Recovered/Resolved]
  - Hallucination [Recovered/Resolved]
  - Movement disorder [Unknown]
  - Parkinson^s disease [Recovered/Resolved]
  - Tremor [Not Recovered/Not Resolved]
  - Unevaluable event [Not Recovered/Not Resolved]
  - Parkinsonian gait [Not Recovered/Not Resolved]

NARRATIVE: CASE EVENT DATE: 20210101
